FAERS Safety Report 5807796-2 (Version None)
Quarter: 2008Q3

REPORT INFORMATION
  Report Type: 
  Country: None (occurrence: None)
  Receive Date: 20080711
  Receipt Date: 20080708
  Transmission Date: 20090109
  Serious: Yes (Hospitalization, Disabling)
  Sender: FDA-Public Use
  Company Number: US-BOEHRINGER INGELHEIM GMBH, GERMANY-2008-BP-04548BP

PATIENT
  Age: 90 Year
  Sex: Female
  Weight: 54 kg

DRUGS (6)
  1. SPIRIVA [Suspect]
     Indication: CHRONIC OBSTRUCTIVE PULMONARY DISEASE
     Route: 055
     Dates: start: 20080101, end: 20080329
  2. SPIRIVA [Suspect]
     Indication: PNEUMONIA
  3. LOTENSIN [Concomitant]
     Indication: HYPERTENSION
     Dates: start: 19991109
  4. ADVAIR DISKUS 100/50 [Concomitant]
     Dates: start: 20080301
  5. LASIX [Concomitant]
     Dates: start: 20060614
  6. ALDACTONE [Concomitant]
     Dates: start: 20071010

REACTIONS (2)
  - ISCHAEMIC STROKE [None]
  - PULMONARY EMBOLISM [None]
